FAERS Safety Report 14092220 (Version 1)
Quarter: 2017Q4

REPORT INFORMATION
  Report Type: Spontaneous
  Country: US (occurrence: US)
  Receive Date: 20171014
  Receipt Date: 20171014
  Transmission Date: 20180321
  Serious: Yes (Disabling)
  Sender: FDA-Public Use
  Company Number: None

PATIENT
  Sex: Male
  Weight: 66.6 kg

DRUGS (29)
  1. NEURONTIN [Concomitant]
     Active Substance: GABAPENTIN
  2. ORENCIA [Concomitant]
     Active Substance: ABATACEPT
  3. TYLENOL [Concomitant]
     Active Substance: ACETAMINOPHEN
  4. BERBEMYCIN [Concomitant]
  5. PAIN RELIEF ESSENTIAL OIL SPRAY WITH EUCALYPTUS + PEPPERMINT PROBIOTIC [Concomitant]
  6. VITAMIN D [Concomitant]
     Active Substance: CHOLECALCIFEROL
  7. PREDNISONE. [Concomitant]
     Active Substance: PREDNISONE
  8. LEVOFLOXACIN 500MG [Suspect]
     Active Substance: LEVOFLOXACIN
     Indication: BRONCHITIS
     Dosage: ?          QUANTITY:1 TABLET(S);?
     Route: 048
  9. LANSOPRAZOLE. [Concomitant]
     Active Substance: LANSOPRAZOLE
  10. GLUCOSAMINE SULFATE [Concomitant]
     Active Substance: GLUCOSAMINE SULFATE
  11. FOLIC ACID. [Concomitant]
     Active Substance: FOLIC ACID
  12. WELLBUTRIN XL [Concomitant]
     Active Substance: BUPROPION HYDROCHLORIDE
  13. DULCOLAX STOOL SOFTENER [Concomitant]
     Active Substance: DOCUSATE SODIUM
  14. MELATONIN [Concomitant]
     Active Substance: MELATONIN
  15. METHOTREXATE. [Concomitant]
     Active Substance: METHOTREXATE
  16. SUCRALFATE. [Concomitant]
     Active Substance: SUCRALFATE
  17. ALEVE [Concomitant]
     Active Substance: NAPROXEN SODIUM
  18. BENFOTIAMINE [Concomitant]
     Active Substance: BENFOTIAMINE
  19. MAGNESIUM CITRATE. [Concomitant]
     Active Substance: MAGNESIUM CITRATE
  20. PROBIOTIC DDS [Concomitant]
  21. LEVOFLOXACIN 500MG [Suspect]
     Active Substance: LEVOFLOXACIN
     Indication: ACUTE SINUSITIS
     Dosage: ?          QUANTITY:1 TABLET(S);?
     Route: 048
  22. ACYCLOVIR. [Concomitant]
     Active Substance: ACYCLOVIR
  23. AZELASTINE. [Concomitant]
     Active Substance: AZELASTINE HYDROCHLORIDE
  24. ZADITOR [Concomitant]
     Active Substance: KETOTIFEN FUMARATE
  25. DULOXETINE HYDROCHLORIDE. [Concomitant]
     Active Substance: DULOXETINE HYDROCHLORIDE
  26. GABAPENTIN. [Concomitant]
     Active Substance: GABAPENTIN
  27. ALPHA-LIPOIC ACID CR W/ BIOTIN [Concomitant]
  28. FENOFIBRATE. [Concomitant]
     Active Substance: FENOFIBRATE
  29. PRESERVATIVE FREE REPLENS RESTASIS OPHTHALMIC [Concomitant]

REACTIONS (3)
  - Pain in extremity [None]
  - Gait disturbance [None]
  - Burning sensation [None]

NARRATIVE: CASE EVENT DATE: 20171012
